FAERS Safety Report 7053044-8 (Version None)
Quarter: 2010Q4

REPORT INFORMATION
  Report Type: 
  Country: None (occurrence: None)
  Receive Date: 20101020
  Receipt Date: 20101008
  Transmission Date: 20110411
  Serious: Yes (Hospitalization)
  Sender: FDA-Public Use
  Company Number: US-ELI_LILLY_AND_COMPANY-US200908000466

PATIENT
  Sex: Male
  Weight: 108 kg

DRUGS (20)
  1. BYETTA [Suspect]
     Indication: DIABETES MELLITUS
     Dosage: 10 UG, UNKNOWN
     Route: 058
     Dates: start: 20060201, end: 20070901
  2. GLUCOPHAGE [Concomitant]
     Indication: DIABETES MELLITUS
     Dosage: 1000 MG, 2/D
     Dates: end: 20070831
  3. GLUCOPHAGE [Concomitant]
     Dosage: 1000 MG, DAILY (1/D)
     Route: 065
     Dates: start: 20060101, end: 20070901
  4. SIMVASTATIN [Concomitant]
     Dosage: 80 MG, DAILY (1/D)
  5. CRESTOR [Concomitant]
     Indication: BLOOD CHOLESTEROL
     Dosage: 20 MG, DAILY (1/D)
     Route: 065
     Dates: start: 20060901, end: 20070901
  6. ZETIA [Concomitant]
     Indication: BLOOD CHOLESTEROL
     Dosage: 10 MG, DAILY (1/D)
     Route: 065
     Dates: start: 20070101, end: 20080101
  7. PLAVIX [Concomitant]
     Dosage: 75 MG, DAILY (1/D)
     Route: 065
  8. LEVOTHYROXINE [Concomitant]
     Dosage: 0.075 MG, UNK
  9. METOPROLOL TARTRATE [Concomitant]
     Indication: HYPERTENSION
     Dosage: 25 MG, 2/D
     Route: 065
     Dates: start: 20040101
  10. LISINOPRIL [Concomitant]
     Dosage: 20 MG, DAILY (1/D)
  11. CYCLOBENZAPRINE [Concomitant]
     Dosage: 10 MG, 3/D
     Route: 065
  12. LORCET-HD [Concomitant]
     Indication: BACK PAIN
     Dosage: UNK, 2/D
     Route: 065
  13. DOXEPIN HCL [Concomitant]
     Indication: DEPRESSION
     Dosage: UNK, UNKNOWN
     Route: 065
     Dates: start: 20000101
  14. LORATADINE [Concomitant]
  15. REQUIP [Concomitant]
  16. GLIPIZIDE [Concomitant]
     Dates: start: 20070111, end: 20070201
  17. STARLIX [Concomitant]
     Dates: start: 20070115, end: 20070131
  18. FUROSEMIDE [Concomitant]
     Indication: DIABETES MELLITUS
     Dosage: 40 MG, UNK
     Route: 065
     Dates: start: 20020101
  19. PRAVASTATIN [Concomitant]
     Indication: BLOOD CHOLESTEROL
     Dosage: UNK, UNKNOWN
     Route: 065
     Dates: start: 20070801, end: 20071001
  20. TYLENOL                                 /SCH/ [Concomitant]
     Indication: BACK PAIN
     Dosage: UNK, UNKNOWN
     Route: 065
     Dates: start: 20040101

REACTIONS (8)
  - DEHYDRATION [None]
  - DRUG INTERACTION [None]
  - IATROGENIC INJURY [None]
  - IMPAIRED GASTRIC EMPTYING [None]
  - NAUSEA [None]
  - PANCREATITIS ACUTE [None]
  - VOMITING [None]
  - WEIGHT DECREASED [None]
